FAERS Safety Report 22313563 (Version 1)
Quarter: 2023Q2

REPORT INFORMATION
  Report Type: Spontaneous
  Country: GB (occurrence: GB)
  Receive Date: 20230512
  Receipt Date: 20230512
  Transmission Date: 20230722
  Serious: Yes (Other)
  Sender: FDA-Public Use
  Company Number: GB-MLMSERVICE-20230426-4251565-1

PATIENT
  Age: 31 Year
  Sex: Female

DRUGS (8)
  1. ETOPOSIDE [Suspect]
     Active Substance: ETOPOSIDE
     Indication: Ovarian germ cell teratoma
     Dosage: DOSE: 495 MG/M2; 165 MG/M2 DAY 1,2 AND 3- RECEIVED ONE CYCLE
     Route: 042
  2. CISPLATIN [Suspect]
     Active Substance: CISPLATIN
     Indication: Ovarian germ cell teratoma
     Dosage: DOSE: 150 MG/M2; 50 MG/M2 (DAY 1,2,3)- RECEIVED ONE CYCLE
     Route: 042
  3. PACLITAXEL [Suspect]
     Active Substance: PACLITAXEL
     Indication: Ovarian germ cell teratoma
     Dosage: 175 MG/M2, RECEIVED ONE CYCLE
     Route: 042
  4. CYCLIZINE [Concomitant]
     Active Substance: CYCLIZINE
     Indication: Supportive care
     Dosage: UNKNOWN
     Route: 065
  5. PALONOSETRON [Concomitant]
     Active Substance: PALONOSETRON
     Indication: Supportive care
     Dosage: UNKNOWN
     Route: 065
  6. FILGRASTIM [Concomitant]
     Active Substance: FILGRASTIM
     Indication: Product used for unknown indication
     Route: 065
  7. DEXAMETHASONE [Concomitant]
     Active Substance: DEXAMETHASONE
     Indication: Supportive care
     Dosage: UNKNOWN
     Route: 065
  8. METOCLOPRAMIDE [Concomitant]
     Active Substance: METOCLOPRAMIDE
     Indication: Supportive care
     Dosage: UNKNOWN
     Route: 065

REACTIONS (2)
  - Neuropathy peripheral [Unknown]
  - Nausea [Unknown]
